FAERS Safety Report 8924973 (Version 1)
Quarter: 2012Q4

REPORT INFORMATION
  Report Type: Spontaneous
  Country: US (occurrence: None)
  Receive Date: 20121126
  Receipt Date: 20121126
  Transmission Date: 20130627
  Serious: Yes (Other)
  Sender: FDA-Public Use
  Company Number: None

PATIENT
  Age: 25 Year
  Sex: Female
  Weight: 49.9 kg

DRUGS (1)
  1. REMICADE [Suspect]

REACTIONS (3)
  - Depression [None]
  - Fear [None]
  - Aggression [None]
